FAERS Safety Report 12899611 (Version 1)
Quarter: 2016Q4

REPORT INFORMATION
  Report Type: Spontaneous
  Country: US (occurrence: US)
  Receive Date: 20161030
  Receipt Date: 20161030
  Transmission Date: 20170207
  Serious: Yes (Other)
  Sender: FDA-Public Use
  Company Number: None

PATIENT
  Age: 58 Year
  Sex: Female
  Weight: 135 kg

DRUGS (2)
  1. LEVOFLOXACIN 750MG [Suspect]
     Active Substance: LEVOFLOXACIN
     Indication: SEPSIS
     Dosage: ?          QUANTITY:10 TABLET(S);?
     Route: 048
     Dates: start: 20161021, end: 20161028
  2. INSULIN [Concomitant]
     Active Substance: INSULIN NOS

REACTIONS (5)
  - Paraesthesia [None]
  - Pain [None]
  - Nerve injury [None]
  - Burning sensation [None]
  - Sepsis [None]

NARRATIVE: CASE EVENT DATE: 20161023
